FAERS Safety Report 21793524 (Version 1)
Quarter: 2022Q4

REPORT INFORMATION
  Report Type: Spontaneous
  Country: DE (occurrence: DE)
  Receive Date: 20221229
  Receipt Date: 20221229
  Transmission Date: 20230113
  Serious: Yes (Other)
  Sender: FDA-Public Use
  Company Number: DE-UCBSA-2022070602

PATIENT
  Age: 24 Year
  Sex: Female

DRUGS (7)
  1. LACOSAMIDE [Suspect]
     Active Substance: LACOSAMIDE
     Indication: Post stroke epilepsy
     Dosage: 300 MILLIGRAM, ONCE A DAY(150 MILLIGRAM, 2X/DAY (BID))
     Route: 065
  2. LACOSAMIDE [Suspect]
     Active Substance: LACOSAMIDE
     Dosage: 200 MILLIGRAM, ONCE A DAY(100 MILLIGRAM, 2X/DAY (BID))
     Route: 065
  3. LACOSAMIDE [Suspect]
     Active Substance: LACOSAMIDE
     Dosage: 200 MILLIGRAM, ONCE A DAY(100 MILLIGRAM, 2X/DAY (BID))
     Route: 065
  4. LEVETIRACETAM [Suspect]
     Active Substance: LEVETIRACETAM
     Indication: Post stroke epilepsy
     Dosage: 4000 MILLIGRAM, ONCE DAILY (QD)
     Route: 065
  5. LEVETIRACETAM [Suspect]
     Active Substance: LEVETIRACETAM
     Dosage: 1000 MILLIGRAM, ONCE A DAY(500 MILLIGRAM, 2X/DAY (BID))
     Route: 065
  6. LEVETIRACETAM [Suspect]
     Active Substance: LEVETIRACETAM
     Dosage: 2000 MILLIGRAM, ONCE A DAY(1000 MILLIGRAM, 2X/DAY (BID))
     Route: 065
  7. BRIVARACETAM [Suspect]
     Active Substance: BRIVARACETAM
     Indication: Post stroke epilepsy
     Dosage: 100 MILLIGRAM, ONCE A DAY(50 MILLIGRAM, 2X/DAY (BID)
     Route: 065

REACTIONS (4)
  - Generalised tonic-clonic seizure [Recovering/Resolving]
  - Post stroke depression [Unknown]
  - Behaviour disorder [Unknown]
  - Dizziness [Unknown]
